FAERS Safety Report 10444592 (Version 1)
Quarter: 2014Q3

REPORT INFORMATION
  Report Type: Spontaneous
  Country: US (occurrence: None)
  Receive Date: 20140909
  Receipt Date: 20140909
  Transmission Date: 20150326
  Serious: No
  Sender: FDA-Public Use
  Company Number: None

PATIENT
  Age: 50 Year
  Sex: Male
  Weight: 131.54 kg

DRUGS (1)
  1. NUVIGIL [Suspect]
     Active Substance: ARMODAFINIL
     Indication: SOMNOLENCE
     Dosage: 1 PILL ONCE DAILY TAKEN BY MOUTH
     Route: 048
     Dates: start: 20140903, end: 20140904

REACTIONS (5)
  - Stomatitis [None]
  - Oropharyngeal pain [None]
  - Balanoposthitis [None]
  - Oral mucosal blistering [None]
  - Oral mucosal exfoliation [None]

NARRATIVE: CASE EVENT DATE: 20140904
